FAERS Safety Report 11287762 (Version 1)
Quarter: 2015Q3

REPORT INFORMATION
  Report Type: Spontaneous
  Country: DE (occurrence: DE)
  Receive Date: 20150721
  Receipt Date: 20150721
  Transmission Date: 20151125
  Serious: Yes (Other)
  Sender: FDA-Public Use
  Company Number: DE-ASTELLAS-2015US025447

PATIENT
  Age: 63 Year
  Sex: Female

DRUGS (3)
  1. TARGIN [Concomitant]
     Active Substance: NALOXONE HYDROCHLORIDE\OXYCODONE HYDROCHLORIDE
     Indication: PAIN
     Dosage: UNK UNK,2 IN 1D
     Route: 048
  2. CRIZOTINIB [Concomitant]
     Active Substance: CRIZOTINIB
     Indication: PRODUCT USED FOR UNKNOWN INDICATION
     Dosage: 250 MG,2 IN 1D
     Route: 065
     Dates: start: 20141121
  3. TARCEVA [Suspect]
     Active Substance: ERLOTINIB HYDROCHLORIDE
     Indication: NON-SMALL CELL LUNG CANCER
     Dosage: UNK UNK, UNKNOWN FREQ.
     Route: 065
     Dates: start: 201403

REACTIONS (12)
  - Metastases to central nervous system [Unknown]
  - Thrombosis [Unknown]
  - Metastases to liver [Unknown]
  - Gastroenteritis clostridial [Unknown]
  - Nausea [Not Recovered/Not Resolved]
  - Pleural effusion [Unknown]
  - Subclavian vein thrombosis [Unknown]
  - Pulmonary embolism [Unknown]
  - Hepatic neoplasm [Unknown]
  - Decreased appetite [Unknown]
  - Hepatic cyst [Unknown]
  - General physical health deterioration [Unknown]

NARRATIVE: CASE EVENT DATE: 201406
